FAERS Safety Report 9712374 (Version 1)
Quarter: 2013Q4

REPORT INFORMATION
  Report Type: Spontaneous
  Country: US (occurrence: US)
  Receive Date: 20131126
  Receipt Date: 20131126
  Transmission Date: 20140711
  Serious: No
  Sender: FDA-Public Use
  Company Number: US-BRISTOL-MYERS SQUIBB COMPANY-19176940

PATIENT
  Age: 55 Year
  Sex: Female
  Weight: 108.84 kg

DRUGS (2)
  1. BYDUREON [Suspect]
     Indication: TYPE 2 DIABETES MELLITUS
     Dosage: NO OF INJECTION:1
     Dates: start: 20130802
  2. METFORMIN [Concomitant]

REACTIONS (1)
  - Weight increased [Unknown]
